FAERS Safety Report 5578111-7 (Version None)
Quarter: 2007Q4

REPORT INFORMATION
  Report Type: 
  Country: None (occurrence: None)
  Receive Date: 20071227
  Receipt Date: 20071210
  Transmission Date: 20080405
  Serious: Yes (Life-Threatening)
  Sender: FDA-Public Use
  Company Number: DSA_30914_2007

PATIENT
  Age: 74 Year
  Sex: Male

DRUGS (6)
  1. ENALAPRIL MALEATE [Suspect]
     Indication: DRUG USE FOR UNKNOWN INDICATION
  2. ASPIRIN [Concomitant]
  3. NORVASC [Concomitant]
  4. CONCOR [Concomitant]
  5. TOREM [Concomitant]
  6. ZOCOR [Concomitant]

REACTIONS (4)
  - DIZZINESS [None]
  - ELECTROLYTE IMBALANCE [None]
  - HYPERKALAEMIA [None]
  - PARAESTHESIA [None]
